FAERS Safety Report 8226256-5 (Version None)
Quarter: 2012Q1

REPORT INFORMATION
  Report Type: 
  Country: None (occurrence: None)
  Receive Date: 20120321
  Receipt Date: 20120306
  Transmission Date: 20120608
  Serious: Yes (Other)
  Sender: FDA-Public Use
  Company Number: US-FRI-1000028912

PATIENT
  Sex: Male

DRUGS (2)
  1. AMBIEN [Suspect]
  2. VIIBRYD [Suspect]
     Dosage: 40 MG
     Dates: start: 20110701

REACTIONS (4)
  - AMNESIA [None]
  - IMPAIRED DRIVING ABILITY [None]
  - DRUG INEFFECTIVE [None]
  - DEPRESSED MOOD [None]
